FAERS Safety Report 19931726 (Version 1)
Quarter: 2021Q4

REPORT INFORMATION
  Report Type: Spontaneous
  Country: US (occurrence: US)
  Receive Date: 20211008
  Receipt Date: 20211008
  Transmission Date: 20220303
  Serious: Yes (Other)
  Sender: FDA-Public Use
  Company Number: US-BAUSCH-BL-2021-033367

PATIENT
  Sex: Female

DRUGS (1)
  1. EFUDEX [Suspect]
     Active Substance: FLUOROURACIL
     Indication: Product used for unknown indication
     Dosage: APPLIED ONLY ON THE FACE. PATIENT HAD TAKEN 10 DOSES OF EFUDEX OVER THE COURSE OF 1 WEEK.
     Route: 061
     Dates: start: 20210904

REACTIONS (6)
  - Blindness transient [Recovering/Resolving]
  - Dyspnoea [Recovering/Resolving]
  - Application site hypoaesthesia [Unknown]
  - Application site pain [Recovering/Resolving]
  - Application site vesicles [Recovering/Resolving]
  - Application site swelling [Recovering/Resolving]

NARRATIVE: CASE EVENT DATE: 20210901
